FAERS Safety Report 5699994-6 (Version None)
Quarter: 2008Q2

REPORT INFORMATION
  Report Type: 
  Country: None (occurrence: None)
  Receive Date: 20080410
  Receipt Date: 20080401
  Transmission Date: 20081010
  Serious: Yes (Other)
  Sender: FDA-Public Use
  Company Number: GB-PURDUE-GBR_2008_0003863

PATIENT
  Age: 53 Year
  Sex: Male

DRUGS (5)
  1. OXYCONTIN [Suspect]
     Indication: PAIN
     Dosage: 80 MG, UNK
     Route: 048
     Dates: start: 20080111, end: 20080114
  2. AMITRIPTYLINE HCL [Concomitant]
     Indication: NEURALGIA
     Dosage: 50 MG, UNK
     Route: 048
  3. VALPROIC ACID [Concomitant]
     Indication: EPILEPSY
     Dosage: 500 MG, UNK
     Route: 048
  4. IBUPROFEN [Concomitant]
     Indication: PAIN
     Dosage: 400 MG, UNK
     Route: 048
  5. OMEPRAZOLE [Concomitant]
     Indication: DYSPEPSIA
     Dosage: 20 MG, UNK
     Route: 048

REACTIONS (1)
  - EPILEPSY [None]
